FAERS Safety Report 19283624 (Version 1)
Quarter: 2021Q2

REPORT INFORMATION
  Report Type: Spontaneous
  Country: US (occurrence: US)
  Receive Date: 20210520
  Receipt Date: 20210520
  Transmission Date: 20210717
  Serious: No
  Sender: FDA-Public Use
  Company Number: US-BEH-2021131799

PATIENT
  Sex: Male

DRUGS (4)
  1. HIZENTRA [Suspect]
     Active Substance: HUMAN IMMUNOGLOBULIN G
     Indication: IMMUNODEFICIENCY COMMON VARIABLE
     Dosage: 4 GRAM, QW, UNDER THE SKIN
     Route: 058
     Dates: start: 20210409
  2. HUMIRA [Concomitant]
     Active Substance: ADALIMUMAB
  3. HIZENTRA [Suspect]
     Active Substance: HUMAN IMMUNOGLOBULIN G
     Dosage: 1 GRAM, QW, UNDER THE SKIN
     Route: 058
     Dates: start: 20210409
  4. HIZENTRA [Suspect]
     Active Substance: HUMAN IMMUNOGLOBULIN G
     Dosage: 10 GRAM, QW UNDER THE SKIN
     Route: 058
     Dates: start: 20210409

REACTIONS (2)
  - Arthralgia [Unknown]
  - Joint swelling [Unknown]
